FAERS Safety Report 24464166 (Version 1)
Quarter: 2024Q4

REPORT INFORMATION
  Report Type: Report from Study
  Country: US (occurrence: US)
  Receive Date: 20241018
  Receipt Date: 20241018
  Transmission Date: 20250115
  Serious: No
  Sender: ROCHE
  Company Number: US-ROCHE-3466896

PATIENT
  Age: 48 Year
  Sex: Female

DRUGS (8)
  1. XOLAIR [Suspect]
     Active Substance: OMALIZUMAB
     Indication: Urticaria
     Route: 058
  2. XOLAIR [Suspect]
     Active Substance: OMALIZUMAB
     Indication: Chronic spontaneous urticaria
     Dosage: LAST INJECTION DONE ON 04/5/2024
     Route: 058
  3. FLUOCINONIDE [Concomitant]
     Active Substance: FLUOCINONIDE
  4. HYDROXYZINE [Concomitant]
     Active Substance: HYDROXYZINE HYDROCHLORIDE
  5. SINGULAIR [Concomitant]
     Active Substance: MONTELUKAST SODIUM
  6. CLOBETASOL [Concomitant]
     Active Substance: CLOBETASOL
  7. DOXEPIN [Concomitant]
     Active Substance: DOXEPIN
  8. ALLEGRA ALLERGY [Concomitant]
     Active Substance: FEXOFENADINE HYDROCHLORIDE

REACTIONS (2)
  - Off label use [Unknown]
  - No adverse event [Unknown]
